FAERS Safety Report 24237978 (Version 1)
Quarter: 2024Q3

REPORT INFORMATION
  Report Type: Spontaneous
  Country: CO (occurrence: CO)
  Receive Date: 20240822
  Receipt Date: 20240822
  Transmission Date: 20241017
  Serious: Yes (Hospitalization)
  Sender: SANOFI AVENTIS
  Company Number: CO-SA-SAC20240821000470

PATIENT
  Age: 15 Year
  Sex: Male

DRUGS (1)
  1. DUPIXENT [Suspect]
     Active Substance: DUPILUMAB
     Indication: Urticaria
     Dosage: UNK UNK, QOW
     Route: 058

REACTIONS (3)
  - Dengue fever [Recovering/Resolving]
  - Decreased immune responsiveness [Recovering/Resolving]
  - Product use in unapproved indication [Unknown]
